FAERS Safety Report 9773701 (Version 1)
Quarter: 2013Q4

REPORT INFORMATION
  Report Type: Spontaneous
  Country: US (occurrence: US)
  Receive Date: 20131219
  Receipt Date: 20131219
  Transmission Date: 20140711
  Serious: No
  Sender: FDA-Public Use
  Company Number: US-MYLANLABS-2013S1012763

PATIENT
  Age: 52 Year
  Sex: Female
  Weight: 86.18 kg

DRUGS (1)
  1. SOTRADECOL [Suspect]
     Indication: VARICOSE VEIN
     Route: 058
     Dates: start: 20130401, end: 20130401

REACTIONS (5)
  - Injection site pain [Recovered/Resolved]
  - Injection site pain [Recovered/Resolved]
  - Cellulitis [Recovered/Resolved]
  - Impaired healing [Recovered/Resolved]
  - Scar [Not Recovered/Not Resolved]
